FAERS Safety Report 7617831-7 (Version None)
Quarter: 2011Q3

REPORT INFORMATION
  Report Type: 
  Country: None (occurrence: None)
  Receive Date: 20110718
  Receipt Date: 20110708
  Transmission Date: 20111222
  Serious: Yes (Hospitalization)
  Sender: FDA-Public Use
  Company Number: US-GENZYME-CLOF-1001300

PATIENT
  Sex: Male
  Weight: 67.5 kg

DRUGS (7)
  1. BENADRYL [Concomitant]
     Indication: PROPHYLAXIS
     Dosage: UNK
     Route: 048
     Dates: start: 20101002
  2. SODIUM BICARBONATE [Concomitant]
     Indication: DEHYDRATION
     Route: 065
  3. ACETAMINOPHEN [Concomitant]
     Indication: PROPHYLAXIS
     Dosage: UNK
     Route: 048
     Dates: start: 20101002
  4. CLOFARABINE [Suspect]
     Indication: CHRONIC MYELOMONOCYTIC LEUKAEMIA
     Dosage: 25 MG, QDX5
     Route: 048
     Dates: start: 20101025, end: 20101029
  5. ROXANOL [Concomitant]
     Indication: PRODUCT USED FOR UNKNOWN INDICATION
     Dosage: UNK
     Route: 048
     Dates: start: 20101205
  6. VICODIN [Concomitant]
     Indication: PRODUCT USED FOR UNKNOWN INDICATION
     Dosage: UNK
     Route: 048
     Dates: start: 20101105
  7. COMPAZINE [Concomitant]
     Indication: PROPHYLAXIS
     Dosage: UNK
     Route: 048
     Dates: start: 20101027

REACTIONS (7)
  - RENAL FAILURE [None]
  - THROMBOCYTOPENIA [None]
  - NEUTROPENIA [None]
  - HAEMATURIA [None]
  - TUMOUR LYSIS SYNDROME [None]
  - ARRHYTHMIA [None]
  - DEHYDRATION [None]
